FAERS Safety Report 20007162 (Version 4)
Quarter: 2021Q4

REPORT INFORMATION
  Report Type: Report from Study
  Country: CH (occurrence: None)
  Receive Date: 20211028
  Receipt Date: 20211221
  Transmission Date: 20220303
  Serious: Yes (Life-Threatening)
  Sender: FDA-Public Use
  Company Number: CH-ROCHE-2944765

PATIENT
  Age: 76 Year
  Sex: Female
  Weight: 58.4 kg

DRUGS (2)
  1. ATEZOLIZUMAB [Suspect]
     Active Substance: ATEZOLIZUMAB
     Indication: Transitional cell carcinoma
     Route: 042
     Dates: start: 20210930, end: 20210930
  2. DERAZANTINIB [Suspect]
     Active Substance: DERAZANTINIB
     Indication: Transitional cell carcinoma
     Dosage: ON 6/OCT/2021, RECEIVED THE MOST RECENT DOE OF DERAZANTINIB PRIOR TO SERIOUS ADVERSE EVENT ONSET
     Route: 048
     Dates: start: 20210930, end: 20211006

REACTIONS (1)
  - Pneumonitis [Not Recovered/Not Resolved]

NARRATIVE: CASE EVENT DATE: 20211017
